FAERS Safety Report 5203483-2 (Version None)
Quarter: 2007Q1

REPORT INFORMATION
  Report Type: 
  Country: None (occurrence: None)
  Receive Date: 20070105
  Receipt Date: 20061226
  Transmission Date: 20070707
  Serious: Yes (Other)
  Sender: FDA-Public Use
  Company Number: S07-CAN-00031-01

PATIENT
  Age: 76 Year
  Sex: Male

DRUGS (6)
  1. TIAZAC [Suspect]
     Indication: HYPERTENSION
     Dosage: 180 MG QHS PO
     Route: 048
     Dates: start: 20061211
  2. TIAZAC XC (DILTIAZEM) [Concomitant]
  3. XATRAL (ALFUZOSIN) [Concomitant]
  4. APO-ALLOPURINOL (ALLOPURINOL) [Concomitant]
  5. DIOVAN [Concomitant]
  6. NOVO-PRAVASTATIN [Concomitant]

REACTIONS (4)
  - BLOOD PRESSURE FLUCTUATION [None]
  - DIZZINESS [None]
  - DRUG INEFFECTIVE [None]
  - HEART RATE INCREASED [None]
